FAERS Safety Report 12594221 (Version 2)
Quarter: 2016Q3

REPORT INFORMATION
  Report Type: Spontaneous
  Country: AU (occurrence: AU)
  Receive Date: 20160726
  Receipt Date: 20160824
  Transmission Date: 20161109
  Serious: Yes (Other)
  Sender: FDA-Public Use
  Company Number: AU-PFIZER INC-2016347102

PATIENT
  Age: 4 Decade
  Sex: Male

DRUGS (3)
  1. LYRICA [Suspect]
     Active Substance: PREGABALIN
     Dosage: 300 MG, 2X/DAY
  2. TRAMADOL. [Concomitant]
     Active Substance: TRAMADOL
  3. VALIUM [Concomitant]
     Active Substance: DIAZEPAM

REACTIONS (1)
  - Drug abuse [Unknown]
